FAERS Safety Report 23035736 (Version 2)
Quarter: 2023Q4

REPORT INFORMATION
  Report Type: Spontaneous
  Country: US (occurrence: US)
  Receive Date: 20231006
  Receipt Date: 20231230
  Transmission Date: 20240110
  Serious: Yes (Other)
  Sender: FDA-Public Use
  Company Number: US-MLMSERVICE-20230921-4557059-1

PATIENT
  Age: 58 Year
  Sex: Female

DRUGS (2)
  1. BORTEZOMIB [Suspect]
     Active Substance: BORTEZOMIB
     Indication: Lichen myxoedematosus
     Dosage: UNK (THREE CYCLES)
     Route: 065
     Dates: start: 2019
  2. DEXAMETHASONE [Suspect]
     Active Substance: DEXAMETHASONE
     Indication: Lichen myxoedematosus
     Dosage: UNK (THREE CYCLES)
     Route: 065
     Dates: start: 2019

REACTIONS (1)
  - Neuropathy peripheral [Recovered/Resolved]
